FAERS Safety Report 19584193 (Version 1)
Quarter: 2021Q3

REPORT INFORMATION
  Report Type: Spontaneous
  Country: CO (occurrence: CO)
  Receive Date: 20210720
  Receipt Date: 20210720
  Transmission Date: 20211014
  Serious: Yes (Hospitalization)
  Sender: FDA-Public Use
  Company Number: CO-ELI_LILLY_AND_COMPANY-CO202107007055

PATIENT
  Sex: Female

DRUGS (1)
  1. FORTEO [Suspect]
     Active Substance: TERIPARATIDE
     Indication: HYPOPARATHYROIDISM
     Dosage: 20 UG, DAILY
     Route: 058
     Dates: start: 202104

REACTIONS (5)
  - Incorrect product administration duration [Unknown]
  - Hypoaesthesia [Unknown]
  - Off label use [Unknown]
  - Blood calcium decreased [Unknown]
  - Nausea [Unknown]
